FAERS Safety Report 6538146-4 (Version None)
Quarter: 2010Q1

REPORT INFORMATION
  Report Type: 
  Country: None (occurrence: None)
  Receive Date: 20100114
  Receipt Date: 20091214
  Transmission Date: 20100710
  Serious: No
  Sender: FDA-Public Use
  Company Number: US-BAYER-200943446NA

PATIENT
  Age: 50 Year
  Sex: Female

DRUGS (3)
  1. ULTRAVIST 300 [Suspect]
     Indication: COMPUTERISED TOMOGRAM ABDOMEN
     Dosage: TOTAL DAILY DOSE: 100 ML
     Dates: start: 20091214, end: 20091214
  2. REDI-CAT [Concomitant]
  3. BLOOD PRESSURE [Concomitant]

REACTIONS (1)
  - URTICARIA [None]
